FAERS Safety Report 8332706-6 (Version None)
Quarter: 2012Q2

REPORT INFORMATION
  Report Type: 
  Country: None (occurrence: None)
  Receive Date: 20120503
  Receipt Date: 20120402
  Transmission Date: 20120825
  Serious: No
  Sender: FDA-Public Use
  Company Number: US-MYLANLABS-2012S1007160

PATIENT
  Age: 71 Year
  Sex: Male

DRUGS (5)
  1. MORPHINE SULFATE [Suspect]
     Route: 048
     Dates: start: 20110101
  2. ALPRAZOLAM [Concomitant]
  3. DRONABINOL [Concomitant]
  4. VYVANSE [Concomitant]
  5. CIALIS [Concomitant]

REACTIONS (1)
  - DRUG SCREEN NEGATIVE [None]
